FAERS Safety Report 17750497 (Version 1)
Quarter: 2020Q2

REPORT INFORMATION
  Report Type: Spontaneous
  Country: GR (occurrence: GR)
  Receive Date: 20200506
  Receipt Date: 20200506
  Transmission Date: 20200714
  Serious: Yes (Death, Other)
  Sender: FDA-Public Use
  Company Number: GR-ASTRAZENECA-2020SE59743

PATIENT
  Sex: Male

DRUGS (3)
  1. ALIMTA [Concomitant]
     Active Substance: PEMETREXED DISODIUM
  2. TAXOTERE [Concomitant]
     Active Substance: DOCETAXEL
  3. DURVALUMAB. [Suspect]
     Active Substance: DURVALUMAB
     Indication: LUNG NEOPLASM MALIGNANT
     Dosage: 6-8 DOSES Q2W
     Route: 042
     Dates: start: 2019

REACTIONS (1)
  - Malignant neoplasm progression [Fatal]
